FAERS Safety Report 19981983 (Version 2)
Quarter: 2021Q4

REPORT INFORMATION
  Report Type: Spontaneous
  Country: JP (occurrence: JP)
  Receive Date: 20211022
  Receipt Date: 20211108
  Transmission Date: 20220303
  Serious: Yes (Hospitalization, Other)
  Sender: FDA-Public Use
  Company Number: JP-LUPIN PHARMACEUTICALS INC.-2021-20045

PATIENT
  Age: 65 Year
  Sex: Male

DRUGS (2)
  1. CEFTRIAXONE [Suspect]
     Active Substance: CEFTRIAXONE
     Indication: Balanoposthitis
     Dosage: UNK
     Route: 065
  2. HYALURONIC ACID [Concomitant]
     Active Substance: HYALURONIC ACID
     Indication: Penile operation
     Dosage: 3 MILLILITER (AT 2 SITES IN THE GLANS PENIS)
     Route: 065

REACTIONS (12)
  - Drug ineffective [Unknown]
  - Off label use [Unknown]
  - Penile pain [Unknown]
  - Condition aggravated [Unknown]
  - Movement disorder [Unknown]
  - Malaise [Unknown]
  - Decreased appetite [Unknown]
  - Insomnia [Unknown]
  - Penile necrosis [Unknown]
  - Enterococcal infection [Unknown]
  - Bacteroides infection [Unknown]
  - Penile ulceration [Unknown]
